FAERS Safety Report 24343398 (Version 1)
Quarter: 2024Q3

REPORT INFORMATION
  Report Type: Spontaneous
  Country: CA (occurrence: CA)
  Receive Date: 20240920
  Receipt Date: 20240920
  Transmission Date: 20241017
  Serious: Yes (Life-Threatening, Hospitalization, Other)
  Sender: ASCEND
  Company Number: CA-Ascend Therapeutics US, LLC-2161851

PATIENT
  Age: 56 Year
  Sex: Male

DRUGS (46)
  1. ANDROGEL [Suspect]
     Active Substance: TESTOSTERONE
     Indication: Product used for unknown indication
  2. TESTOSTERONE [Suspect]
     Active Substance: TESTOSTERONE
  3. ZOPICLONE [Concomitant]
     Active Substance: ZOPICLONE
  4. TRAZODONE HYDROCHLORIDE [Concomitant]
     Active Substance: TRAZODONE HYDROCHLORIDE
  5. TRAZODONE [Concomitant]
     Active Substance: TRAZODONE HYDROCHLORIDE
  6. TAMSULOSIN HYDROCHLORIDE [Concomitant]
     Active Substance: TAMSULOSIN HYDROCHLORIDE
  7. SYNTHROID [Concomitant]
     Active Substance: LEVOTHYROXINE SODIUM
  8. ROSUVASTATIN [Concomitant]
     Active Substance: ROSUVASTATIN\ROSUVASTATIN CALCIUM
  9. RIVOTRIL [Concomitant]
     Active Substance: CLONAZEPAM
  10. ZOPICLONE [Concomitant]
     Active Substance: ZOPICLONE
  11. RAMIPRIL [Concomitant]
     Active Substance: RAMIPRIL
  12. NITROGLYCERIN [Concomitant]
     Active Substance: NITROGLYCERIN
  13. NITRO-DUR [Concomitant]
     Active Substance: NITROGLYCERIN
  14. NASONEX [Concomitant]
     Active Substance: MOMETASONE FUROATE
  15. MORNIFLUMATE [Concomitant]
     Active Substance: MORNIFLUMATE
  16. METOCLOPRAMIDE [Concomitant]
     Active Substance: METOCLOPRAMIDE
  17. METOCLOPRAMIDE HYDROCHLORIDE [Concomitant]
     Active Substance: METOCLOPRAMIDE HYDROCHLORIDE
  18. LEVOTHYROXINE SODIUM [Concomitant]
     Active Substance: LEVOTHYROXINE SODIUM
  19. HYDROCORTISONE [Concomitant]
     Active Substance: HYDROCORTISONE\HYDROCORTISONE ACETATE
  20. NITROGLYCERIN [Concomitant]
     Active Substance: NITROGLYCERIN
  21. ESCITALOPRAM OXALATE [Concomitant]
     Active Substance: ESCITALOPRAM OXALATE
  22. ESCITALOPRAM [Concomitant]
     Active Substance: ESCITALOPRAM OXALATE
  23. DILTIAZEM HYDROCHLORIDE [Concomitant]
     Active Substance: DILTIAZEM HYDROCHLORIDE
  24. DILTIAZEM HYDROCHLORIDE [Concomitant]
     Active Substance: DILTIAZEM HYDROCHLORIDE
  25. DILTIAZEM [Concomitant]
     Active Substance: DILTIAZEM
  26. DEXILANT [Concomitant]
     Active Substance: DEXLANSOPRAZOLE
  27. DEXILANT [Concomitant]
     Active Substance: DEXLANSOPRAZOLE
  28. DEXILANT [Concomitant]
     Active Substance: DEXLANSOPRAZOLE
  29. DELATESTRYL [Concomitant]
     Active Substance: TESTOSTERONE ENANTHATE
  30. DELATESTRYL [Concomitant]
     Active Substance: TESTOSTERONE ENANTHATE
  31. DELATESTRYL [Concomitant]
     Active Substance: TESTOSTERONE ENANTHATE
  32. CLONAZEPAM [Concomitant]
     Active Substance: CLONAZEPAM
  33. CLONAZEPAM [Concomitant]
     Active Substance: CLONAZEPAM
  34. CICLOPIROX OLAMINE [Concomitant]
     Active Substance: CICLOPIROX OLAMINE
  35. CICLOPIROX OLAMINE [Concomitant]
     Active Substance: CICLOPIROX OLAMINE
  36. CICLOPIROX [Concomitant]
     Active Substance: CICLOPIROX
  37. BRILINTA [Concomitant]
     Active Substance: TICAGRELOR
  38. BRILINTA [Concomitant]
     Active Substance: TICAGRELOR
  39. BRILINTA [Concomitant]
     Active Substance: TICAGRELOR
  40. BISOPROLOL. [Concomitant]
     Active Substance: BISOPROLOL FUMARATE
  41. BISOPROLOL. [Concomitant]
     Active Substance: BISOPROLOL FUMARATE
  42. TRAZODONE HYDROCHLORIDE [Concomitant]
     Active Substance: TRAZODONE HYDROCHLORIDE
  43. AMLODIPINE BESYLATE [Concomitant]
     Active Substance: AMLODIPINE BESYLATE
  44. ASPIRIN [Concomitant]
     Active Substance: ASPIRIN
  45. ASPIRIN [Concomitant]
     Active Substance: ASPIRIN
  46. ACETAMINOPHEN andCOD.PHOS.ELX [Concomitant]

REACTIONS (3)
  - Drug ineffective [Recovered/Resolved]
  - Device malfunction [Recovered/Resolved]
  - Device dislocation [Recovered/Resolved]
